FAERS Safety Report 18119102 (Version 1)
Quarter: 2020Q3

REPORT INFORMATION
  Report Type: Spontaneous
  Country: US (occurrence: US)
  Receive Date: 20200806
  Receipt Date: 20200806
  Transmission Date: 20201103
  Serious: No
  Sender: FDA-Public Use
  Company Number: US-DSJP-DSU-2020-122346

PATIENT

DRUGS (4)
  1. COLESEVELAM HCL [Suspect]
     Active Substance: COLESEVELAM HYDROCHLORIDE
     Indication: HYPERLIPIDAEMIA
     Dosage: 3 DF, BID
     Route: 048
     Dates: start: 202007
  2. WELCHOL [Suspect]
     Active Substance: COLESEVELAM HYDROCHLORIDE
     Indication: GASTRIC DISORDER
     Dosage: 3 DF, BID
     Route: 048
     Dates: start: 202007
  3. COLESEVELAM HCL [Suspect]
     Active Substance: COLESEVELAM HYDROCHLORIDE
     Indication: GASTRIC DISORDER
  4. WELCHOL [Suspect]
     Active Substance: COLESEVELAM HYDROCHLORIDE
     Indication: HYPERLIPIDAEMIA
     Dosage: 3 DF, BID
     Route: 048
     Dates: start: 2019, end: 2020

REACTIONS (3)
  - Off label use [Not Recovered/Not Resolved]
  - Therapeutic response unexpected [Unknown]
  - No adverse event [Unknown]

NARRATIVE: CASE EVENT DATE: 2019
